FAERS Safety Report 21846908 (Version 2)
Quarter: 2023Q1

REPORT INFORMATION
  Report Type: Report from Study
  Country: IN (occurrence: IN)
  Receive Date: 20230111
  Receipt Date: 20230214
  Transmission Date: 20230418
  Serious: Yes (Other)
  Sender: FDA-Public Use
  Company Number: IN-002147023-NVSC2022IN258819

PATIENT
  Sex: Female

DRUGS (9)
  1. SECUKINUMAB [Suspect]
     Active Substance: SECUKINUMAB
     Indication: Psoriatic arthropathy
     Dosage: 150 MG, QMO
     Route: 058
     Dates: start: 202011
  2. SECUKINUMAB [Suspect]
     Active Substance: SECUKINUMAB
     Dosage: 150 MG, QMO
     Route: 058
     Dates: start: 202209
  3. SECUKINUMAB [Suspect]
     Active Substance: SECUKINUMAB
     Dosage: 150 MG, QMO
     Route: 058
     Dates: start: 20221115
  4. SECUKINUMAB [Suspect]
     Active Substance: SECUKINUMAB
     Dosage: 150 MG, QMO
     Route: 058
     Dates: start: 20230108
  5. METHOTREXATE SODIUM [Concomitant]
     Active Substance: METHOTREXATE SODIUM
     Indication: Product used for unknown indication
     Dosage: 10 MG, QW (SATURDAY, AFTER FOOD)
     Route: 065
     Dates: start: 20230104
  6. SYSFOL [Concomitant]
     Indication: Product used for unknown indication
     Dosage: UNK, BIW (WEDNESDAY AND THURSDAY, AFTER FOOD)
     Route: 065
     Dates: start: 20230104
  7. NAPROSYN [Concomitant]
     Active Substance: NAPROXEN
     Indication: Pain
     Dosage: UNK, PRN (AFTER DINNER)
     Route: 065
     Dates: start: 20230104
  8. PREDMET [Concomitant]
     Indication: Product used for unknown indication
     Dosage: UNK, BID (AFTER FOOD)
     Route: 065
     Dates: start: 20230104
  9. ESOGRESS [Concomitant]
     Indication: Product used for unknown indication
     Dosage: UNK, QD (BEFORE BREAKFAST)
     Route: 065
     Dates: start: 20230104

REACTIONS (3)
  - Type 2 diabetes mellitus [Unknown]
  - Psoriatic arthropathy [Unknown]
  - C-reactive protein abnormal [Unknown]
